FAERS Safety Report 9081206 (Version 1)
Quarter: 2013Q1

REPORT INFORMATION
  Report Type: Spontaneous
  Country: US (occurrence: US)
  Receive Date: 20130218
  Receipt Date: 20130218
  Transmission Date: 20140127
  Serious: No
  Sender: FDA-Public Use
  Company Number: US-PFIZER INC-2013038206

PATIENT
  Age: 41 Year
  Sex: Female
  Weight: 65.76 kg

DRUGS (4)
  1. NEURONTIN [Suspect]
     Indication: FIBROMYALGIA
     Dosage: UNK, 3X/DAY
     Route: 048
     Dates: end: 2010
  2. GABAPENTIN [Suspect]
     Indication: FIBROMYALGIA
     Dosage: UNK, 3X/DAY
     Route: 048
     Dates: start: 2010, end: 2010
  3. XANAX [Concomitant]
     Dosage: UNK
  4. PAXIL [Concomitant]
     Dosage: UNK

REACTIONS (1)
  - Drug ineffective [Unknown]
